FAERS Safety Report 8276098-X (Version None)
Quarter: 2012Q2

REPORT INFORMATION
  Report Type: 
  Country: None (occurrence: None)
  Receive Date: 20120412
  Receipt Date: 20120403
  Transmission Date: 20120825
  Serious: Yes (Hospitalization)
  Sender: FDA-Public Use
  Company Number: US-PERRIGO-12US002832

PATIENT
  Sex: Male
  Weight: 126.98 kg

DRUGS (1)
  1. FAMOTIDINE COMPLETE BERRY 321 [Suspect]
     Indication: DYSPEPSIA
     Dosage: 3 TABLETS, ONCE
     Route: 048
     Dates: start: 20120330, end: 20120330

REACTIONS (3)
  - LOSS OF CONSCIOUSNESS [None]
  - ACCIDENTAL OVERDOSE [None]
  - COMA [None]
